FAERS Safety Report 8758381 (Version 1)
Quarter: 2012Q4

REPORT INFORMATION
  Report Type: Spontaneous
  Country: US (occurrence: None)
  Receive Date: 20120828
  Receipt Date: 20120828
  Transmission Date: 20130627
  Serious: Yes (Death, Life-Threatening, Hospitalization, Other)
  Sender: FDA-Public Use
  Company Number: None

PATIENT
  Age: 60 Year
  Sex: Female
  Weight: 70.31 kg

DRUGS (1)
  1. TYVASO [Suspect]
     Dosage: 1 vial 3 per day
     Route: 055
     Dates: start: 20101001, end: 20101001

REACTIONS (5)
  - Sepsis [None]
  - Respiratory failure [None]
  - Acidosis [None]
  - Device related infection [None]
  - Device related infection [None]
